FAERS Safety Report 23552223 (Version 1)
Quarter: 2024Q1

REPORT INFORMATION
  Report Type: Spontaneous
  Country: CO (occurrence: None)
  Receive Date: 20240222
  Receipt Date: 20240222
  Transmission Date: 20240410
  Serious: Yes (Death)
  Sender: FDA-Public Use
  Company Number: CO-ROCHE-3513991

PATIENT
  Sex: Male

DRUGS (1)
  1. POLIVY [Suspect]
     Active Substance: POLATUZUMAB VEDOTIN-PIIQ
     Indication: Product used for unknown indication
     Dosage: DOSE, FREQUENCY AND VIA WERE NOT REPORTED
     Route: 065

REACTIONS (2)
  - Death [Fatal]
  - Neutropenia [Unknown]
